FAERS Safety Report 7913954-3 (Version None)
Quarter: 2011Q4

REPORT INFORMATION
  Report Type: 
  Country: None (occurrence: None)
  Receive Date: 20111115
  Receipt Date: 20111107
  Transmission Date: 20120403
  Serious: Yes (Other)
  Sender: FDA-Public Use
  Company Number: US-ACTELION-A-US2011-56762

PATIENT

DRUGS (4)
  1. DIGOXIN [Concomitant]
  2. TRACLEER [Suspect]
     Indication: PULMONARY ARTERIAL HYPERTENSION
     Dosage: UNK
     Route: 048
     Dates: start: 20080723
  3. COUMADIN [Concomitant]
  4. OXYGEN [Concomitant]

REACTIONS (3)
  - LUNG NEOPLASM MALIGNANT [None]
  - PLEURAL EFFUSION [None]
  - HEPATIC NEOPLASM MALIGNANT [None]
